FAERS Safety Report 8176224-7 (Version None)
Quarter: 2012Q1

REPORT INFORMATION
  Report Type: 
  Country: None (occurrence: None)
  Receive Date: 20120301
  Receipt Date: 20120223
  Transmission Date: 20120608
  Serious: Yes (Other)
  Sender: FDA-Public Use
  Company Number: JP-JNJFOC-20111204371

PATIENT
  Sex: Female

DRUGS (10)
  1. REMICADE [Suspect]
     Indication: CROHN'S DISEASE
     Route: 042
     Dates: start: 20100204
  2. FAMOTIDINE [Suspect]
     Indication: PRODUCT USED FOR UNKNOWN INDICATION
     Route: 048
     Dates: start: 20090901, end: 20101022
  3. RIZE [Concomitant]
     Route: 048
     Dates: start: 20080101
  4. SULPIRIDE [Concomitant]
     Route: 048
     Dates: start: 20080101
  5. REMICADE [Suspect]
     Route: 042
     Dates: start: 20110101
  6. REMICADE [Suspect]
     Route: 042
     Dates: start: 20100918
  7. ALFAROL [Suspect]
     Indication: OSTEOPOROSIS
     Route: 048
     Dates: start: 20100901, end: 20101022
  8. AMOBAN [Concomitant]
     Route: 048
     Dates: start: 20080101
  9. REMICADE [Suspect]
     Route: 042
     Dates: start: 20090301
  10. REMICADE [Suspect]
     Route: 042
     Dates: start: 20101101

REACTIONS (2)
  - PEMPHIGUS [None]
  - PEMPHIGOID [None]
